FAERS Safety Report 7896642-1 (Version None)
Quarter: 2011Q4

REPORT INFORMATION
  Report Type: 
  Country: None (occurrence: None)
  Receive Date: 20111107
  Receipt Date: 20111027
  Transmission Date: 20120403
  Serious: No
  Sender: FDA-Public Use
  Company Number: US-BIOGENIDEC-2010BI027523

PATIENT
  Sex: Female

DRUGS (2)
  1. TYSABRI [Suspect]
     Indication: MULTIPLE SCLEROSIS
     Route: 042
     Dates: start: 20061215, end: 20101007
  2. AVONEX [Concomitant]
     Route: 030

REACTIONS (10)
  - ROTATOR CUFF SYNDROME [None]
  - INSOMNIA [None]
  - ARTHRITIS [None]
  - MUSCULOSKELETAL PAIN [None]
  - OPTIC NEURITIS [None]
  - URINARY TRACT INFECTION [None]
  - WHITE BLOOD CELL COUNT INCREASED [None]
  - PYREXIA [None]
  - JOINT RANGE OF MOTION DECREASED [None]
  - URINARY RETENTION [None]
